FAERS Safety Report 6865511-8 (Version None)
Quarter: 2010Q3

REPORT INFORMATION
  Report Type: 
  Country: None (occurrence: None)
  Receive Date: 20100720
  Receipt Date: 20100705
  Transmission Date: 20110219
  Serious: Yes (Other)
  Sender: FDA-Public Use
  Company Number: 1000015056

PATIENT
  Sex: Female

DRUGS (1)
  1. ESCITALOPRAM OXALATE [Suspect]
     Dosage: 8 MG (8 MG, 1 IN 1 D), ORAL
     Route: 048

REACTIONS (1)
  - ACTIVATED PARTIAL THROMBOPLASTIN TIME PROLONGED [None]
